FAERS Safety Report 8553222-2 (Version None)
Quarter: 2012Q3

REPORT INFORMATION
  Report Type: 
  Country: None (occurrence: None)
  Receive Date: 20120731
  Receipt Date: 20120720
  Transmission Date: 20120928
  Serious: Yes (Hospitalization)
  Sender: FDA-Public Use
  Company Number: GB-SANOFI-AVENTIS-2012SA045896

PATIENT
  Sex: Female

DRUGS (3)
  1. CISPLATIN [Suspect]
     Route: 065
  2. DOCETAXEL [Suspect]
     Route: 065
     Dates: start: 20120503
  3. BLINDED THERAPY [Suspect]
     Route: 048
     Dates: start: 20120503

REACTIONS (11)
  - DEVICE LEAKAGE [None]
  - CLOSTRIDIUM DIFFICILE COLITIS [None]
  - GASTRIC HAEMORRHAGE [None]
  - HYPOKALAEMIA [None]
  - ELECTROLYTE IMBALANCE [None]
  - DEHYDRATION [None]
  - ASTHENIA [None]
  - HYPOMAGNESAEMIA [None]
  - ANAEMIA [None]
  - ABDOMINAL PAIN [None]
  - DIARRHOEA [None]
